FAERS Safety Report 16928097 (Version 1)
Quarter: 2019Q4

REPORT INFORMATION
  Report Type: Spontaneous
  Country: IN (occurrence: IN)
  Receive Date: 20191017
  Receipt Date: 20191017
  Transmission Date: 20200122
  Serious: Yes (Other)
  Sender: FDA-Public Use
  Company Number: IN-AMGEN-INDSP2019168654

PATIENT
  Age: 38 Year
  Sex: Female

DRUGS (3)
  1. DARBEPOETIN ALFA [Suspect]
     Active Substance: DARBEPOETIN ALFA
     Indication: TUBULOINTERSTITIAL NEPHRITIS
     Dosage: 40 MICROGRAM, QWK
     Route: 058
  2. EPOETIN ALFA [Suspect]
     Active Substance: ERYTHROPOIETIN
     Indication: HAEMOGLOBIN DECREASED
     Dosage: 10000 UNIT, 3 TIMES/WK
     Route: 058
  3. DARBEPOETIN ALFA [Suspect]
     Active Substance: DARBEPOETIN ALFA
     Indication: IRON DEFICIENCY ANAEMIA
     Dosage: 40 MICROGRAM, QWK
     Route: 058

REACTIONS (2)
  - Aplasia pure red cell [Unknown]
  - Anti-erythropoietin antibody positive [Unknown]
